FAERS Safety Report 24097488 (Version 1)
Quarter: 2024Q3

REPORT INFORMATION
  Report Type: Spontaneous
  Country: US (occurrence: US)
  Receive Date: 20240716
  Receipt Date: 20240716
  Transmission Date: 20241017
  Serious: Yes (Hospitalization, Other)
  Sender: EMERGENT BIOSOLUTIONS
  Company Number: US-Emergent Biosolutions-24000104

PATIENT
  Age: 23 Year

DRUGS (3)
  1. NALOXONE HYDROCHLORIDE [Suspect]
     Active Substance: NALOXONE HYDROCHLORIDE
     Indication: Overdose
     Dosage: 2 MILLIGRAM, INITIAL DOSE
     Route: 042
  2. NALOXONE HYDROCHLORIDE [Suspect]
     Active Substance: NALOXONE HYDROCHLORIDE
     Dosage: UNK, TOTAL DOSE 19 MG (DISCRETE DOSES WAS 9)
     Route: 065
  3. HEROIN [Concomitant]
     Active Substance: DIAMORPHINE
     Dosage: UNK
     Route: 065

REACTIONS (2)
  - Pulmonary oedema [Recovered/Resolved]
  - Drug withdrawal syndrome [Recovered/Resolved]
